FAERS Safety Report 7414149-2 (Version None)
Quarter: 2011Q2

REPORT INFORMATION
  Report Type: 
  Country: None (occurrence: None)
  Receive Date: 20110414
  Receipt Date: 20110408
  Transmission Date: 20111010
  Serious: Yes (Life-Threatening, Hospitalization, Disabling)
  Sender: FDA-Public Use
  Company Number: GB-PFIZER INC-2008015778

PATIENT
  Age: 68 Year
  Sex: Male

DRUGS (2)
  1. SUNITINIB MALATE [Suspect]
     Dosage: 37.5 MG, UNK
     Dates: start: 20070621, end: 20080213
  2. SUNITINIB MALATE [Suspect]
     Indication: RENAL CELL CARCINOMA
     Dosage: 50 MG, 1X/DAY
     Route: 048
     Dates: start: 20060727, end: 20070605

REACTIONS (1)
  - HAEMORRHAGIC STROKE [None]
